FAERS Safety Report 7963434-4 (Version None)
Quarter: 2011Q4

REPORT INFORMATION
  Report Type: 
  Country: None (occurrence: None)
  Receive Date: 20111208
  Receipt Date: 20111202
  Transmission Date: 20120403
  Serious: No
  Sender: FDA-Public Use
  Company Number: US-BAYER-2011-116219

PATIENT
  Age: 70 Year
  Sex: Male

DRUGS (2)
  1. TIKOSYN [Concomitant]
  2. LEVITRA [Suspect]

REACTIONS (1)
  - DRUG INEFFECTIVE [None]
